FAERS Safety Report 14763296 (Version 5)
Quarter: 2019Q3

REPORT INFORMATION
  Report Type: Spontaneous
  Country: US (occurrence: US)
  Receive Date: 20180416
  Receipt Date: 20190927
  Transmission Date: 20191004
  Serious: Yes (Congenital Anomaly, Other)
  Sender: FDA-Public Use
  Company Number: PHEH2018US013249

PATIENT
  Sex: Female

DRUGS (3)
  1. ZOFRAN [Suspect]
     Active Substance: ONDANSETRON HYDROCHLORIDE
     Indication: FOETAL EXPOSURE DURING PREGNANCY
     Dosage: MOTHER DOSE: 04 MG, Q6H
     Route: 064
  2. ZOFRAN [Suspect]
     Active Substance: ONDANSETRON HYDROCHLORIDE
     Indication: FOETAL EXPOSURE DURING PREGNANCY
     Route: 064
  3. ONDANSETRON TEVA [Suspect]
     Active Substance: ONDANSETRON
     Indication: FOETAL EXPOSURE DURING PREGNANCY
     Dosage: MOTHER DOSE: UNK
     Route: 064

REACTIONS (9)
  - Pneumonia [Unknown]
  - Cerebral palsy [Unknown]
  - Premature baby [Unknown]
  - Injury [Unknown]
  - Foetal exposure during pregnancy [Unknown]
  - Atrioventricular septal defect [Unknown]
  - Heart disease congenital [Unknown]
  - Fluid retention [Unknown]
  - Tympanic membrane perforation [Unknown]
